FAERS Safety Report 8911785 (Version 1)
Quarter: 2012Q4

REPORT INFORMATION
  Report Type: 
  Country: US (occurrence: US)
  Receive Date: 20121115
  Receipt Date: 20121115
  Transmission Date: 20130627
  Serious: Yes (Hospitalization)
  Sender: FDA-Public Use
  Company Number: US-GLAXOSMITHKLINE-A0862021A

PATIENT
  Sex: Male
  Weight: 92.3 kg

DRUGS (1)
  1. AVANDIA [Suspect]
     Indication: TYPE 2 DIABETES MELLITUS
     Dosage: 4MG Per day
     Route: 048
     Dates: start: 20010628, end: 20070606

REACTIONS (5)
  - Acute myocardial infarction [Unknown]
  - Anaemia [Unknown]
  - Bundle branch block [Unknown]
  - Coronary artery disease [Unknown]
  - Bradycardia [Unknown]
